FAERS Safety Report 14062630 (Version 2)
Quarter: 2017Q4

REPORT INFORMATION
  Report Type: Spontaneous
  Country: US (occurrence: US)
  Receive Date: 20171009
  Receipt Date: 20171012
  Transmission Date: 20180321
  Serious: No
  Sender: FDA-Public Use
  Company Number: US-B.I. PHARMACEUTICALS,INC./RIDGEFIELD-2017-BI-054212

PATIENT
  Age: 62 Year
  Sex: Female

DRUGS (7)
  1. INSULIN LISPRO [Concomitant]
     Active Substance: INSULIN LISPRO
     Indication: TYPE 2 DIABETES MELLITUS
     Dosage: AS NEEDED BASED ON FINGER STICK BLOOD SUGARS;
     Route: 058
     Dates: start: 1997
  2. INSULIN DETEMIR [Concomitant]
     Active Substance: INSULIN DETEMIR
     Indication: TYPE 2 DIABETES MELLITUS
     Dosage: AT BEDTIME;  FORM STRENGTH: 50 UNITS
     Route: 058
     Dates: start: 2013
  3. PROPANOLOL [Concomitant]
     Active Substance: PROPRANOLOL HYDROCHLORIDE
     Indication: HYPERTENSION
     Dosage: QD;  FORM STRENGTH: 125MG
     Route: 048
     Dates: start: 2007
  4. JARDIANCE [Suspect]
     Active Substance: EMPAGLIFLOZIN
     Indication: TYPE 2 DIABETES MELLITUS
     Dosage: QD;  FORM STRENGTH: 25 MG; FORMULATION: TABLET? ADMINISTRATION CORRECT? YES ?ACTION(S) TAKEN WITH PR
     Route: 048
     Dates: start: 20170923
  5. VENTOLIN [Concomitant]
     Active Substance: ALBUTEROL SULFATE
     Indication: ASTHMA
     Dosage: AS NEEDED;
     Route: 055
     Dates: start: 1992
  6. BENICAR [Concomitant]
     Active Substance: OLMESARTAN MEDOXOMIL
     Indication: HYPERTENSION
     Dosage: QD;  FORM STRENGTH: 20MG
     Route: 048
     Dates: start: 2007
  7. PROPANOLOL [Concomitant]
     Active Substance: PROPRANOLOL HYDROCHLORIDE
     Indication: PALPITATIONS

REACTIONS (4)
  - Urinary tract infection [Not Recovered/Not Resolved]
  - White blood cell count increased [Unknown]
  - Hypertension [Recovered/Resolved]
  - Decreased insulin requirement [Not Recovered/Not Resolved]

NARRATIVE: CASE EVENT DATE: 2017
